FAERS Safety Report 5021759-9 (Version None)
Quarter: 2006Q2

REPORT INFORMATION
  Report Type: 
  Country: None (occurrence: None)
  Receive Date: 20060605
  Receipt Date: 20060520
  Transmission Date: 20061013
  Serious: Yes (Hospitalization, Other)
  Sender: FDA-Public Use
  Company Number: 2005002521

PATIENT
  Age: 56 Year
  Sex: Female
  Weight: 51.7101 kg

DRUGS (20)
  1. BEXTRA [Suspect]
     Indication: ARTHRITIS
     Dosage: ORAL
     Route: 048
     Dates: start: 20041209, end: 20041218
  2. BEXTRA [Suspect]
     Indication: PAIN
     Dosage: ORAL
     Route: 048
     Dates: start: 20041209, end: 20041218
  3. NICOTINE [Suspect]
     Indication: SMOKING CESSATION THERAPY
     Dosage: TRANSDERMAL
     Route: 062
     Dates: start: 20041205, end: 20041221
  4. BENADRYL [Suspect]
     Indication: PAIN
     Dosage: TOPICAL
     Route: 061
     Dates: start: 20060101
  5. BENADRYL [Suspect]
     Indication: RASH
     Dosage: TOPICAL
     Route: 061
     Dates: start: 20060101
  6. CALADRYL [Suspect]
     Indication: RASH
     Dosage: TOPICAL
     Route: 061
     Dates: start: 20060101
  7. ALL OTHER THERAPEUTIC PRODUCTS [Suspect]
     Indication: RASH
     Dosage: TOPICAL
     Route: 061
     Dates: start: 20060101
  8. ESTROPIPATE [Concomitant]
  9. RANITIDINE [Concomitant]
  10. HYDROCHLOROTHIAZIDE [Concomitant]
  11. VALSARTAN [Concomitant]
  12. NASACORT [Concomitant]
  13. ALBUTEROL [Concomitant]
  14. HYDROCORTISONE [Concomitant]
  15. LIPITOR [Concomitant]
  16. CYCLOBENZAPRINE HCL [Concomitant]
  17. FOLIC ACID [Concomitant]
  18. LUXIQ (BETAMETHASONE VALERATE) [Concomitant]
  19. TAZORAC [Concomitant]
  20. ALL OTHER NON-THERAPEUTIC PRODUCTS [Concomitant]

REACTIONS (16)
  - ARTHRITIS [None]
  - AURICULAR SWELLING [None]
  - CONDITION AGGRAVATED [None]
  - DYSPNOEA [None]
  - EAR HAEMORRHAGE [None]
  - EAR PAIN [None]
  - HYPERAESTHESIA [None]
  - INNER EAR DISORDER [None]
  - PHARYNGEAL OEDEMA [None]
  - RASH ERYTHEMATOUS [None]
  - RASH GENERALISED [None]
  - RASH PRURITIC [None]
  - SCRATCH [None]
  - SWELLING [None]
  - TREATMENT NONCOMPLIANCE [None]
  - WEIGHT INCREASED [None]
